FAERS Safety Report 6706968-2 (Version None)
Quarter: 2010Q2

REPORT INFORMATION
  Report Type: 
  Country: None (occurrence: None)
  Receive Date: 20100503
  Receipt Date: 20100429
  Transmission Date: 20101027
  Serious: Yes (Hospitalization, Disabling)
  Sender: FDA-Public Use
  Company Number: US-MERCK-0809USA00944

PATIENT
  Age: 71 Year
  Sex: Female

DRUGS (2)
  1. FOSAMAX [Suspect]
     Indication: OSTEOPENIA
     Route: 048
     Dates: start: 20010801, end: 20040301
  2. FOSAMAX [Suspect]
     Route: 048
     Dates: end: 20020301

REACTIONS (22)
  - ADVERSE DRUG REACTION [None]
  - BACK DISORDER [None]
  - BLOOD PRESSURE INCREASED [None]
  - BONE DENSITY DECREASED [None]
  - BREAST DISORDER [None]
  - CATARACT [None]
  - COLONIC POLYP [None]
  - CONSTIPATION [None]
  - DIVERTICULUM [None]
  - DRUG HYPERSENSITIVITY [None]
  - DRUG INEFFECTIVE [None]
  - DYSLIPIDAEMIA [None]
  - FURUNCLE [None]
  - HERPES ZOSTER [None]
  - INTESTINAL GANGRENE [None]
  - JAW DISORDER [None]
  - OESOPHAGITIS [None]
  - ONYCHOMYCOSIS [None]
  - OSTEONECROSIS OF JAW [None]
  - RADICULAR CYST [None]
  - RHINITIS ALLERGIC [None]
  - URINARY TRACT INFECTION [None]
